FAERS Safety Report 8513745-9 (Version None)
Quarter: 2012Q3

REPORT INFORMATION
  Report Type: 
  Country: None (occurrence: None)
  Receive Date: 20120705
  Receipt Date: 20120621
  Transmission Date: 20120928
  Serious: Yes (Hospitalization)
  Sender: FDA-Public Use
  Company Number: CIP09000865

PATIENT
  Age: 56 Year
  Sex: Female
  Weight: 81.6 kg

DRUGS (16)
  1. ACTONEL [Suspect]
     Indication: OSTEOPOROSIS
     Dosage: 150 MG ONCE MONTHLY,ORAL
     Route: 048
     Dates: start: 20090101, end: 20090301
  2. FLEXERIL /00428402/ (CYCOBENZAPRINE HYDROCHLORIDE) [Concomitant]
  3. SYNTHROID [Concomitant]
  4. TEMAZEPAM [Concomitant]
  5. EVISTA /01303201/ (RALOXIFENE) [Concomitant]
  6. AMBIEN CR [Concomitant]
  7. TRILYTE (MACROGOL 3350, POTASSIUM CHLORIDE, SODIUM BICARBONATE, SODIUM [Concomitant]
  8. DYAZIDE [Concomitant]
  9. HYDROCODONE BITARTRATE [Concomitant]
  10. METOCLOPRAMIDE [Concomitant]
  11. CALCIUM +D (CALCIUM, ERGOCACLIFEROL) [Concomitant]
  12. TIZANIDINE HCL [Concomitant]
  13. PREVACID [Concomitant]
  14. VITAMIN B-12 [Concomitant]
  15. PREMARIN VAGINAL (ESTROGES CONJUGATED) [Concomitant]
  16. LORTAB [Concomitant]

REACTIONS (38)
  - GAIT DISTURBANCE [None]
  - ARTHRALGIA [None]
  - BURSITIS [None]
  - CHILLS [None]
  - DRUG HYPERSENSITIVITY [None]
  - TENDERNESS [None]
  - TRICUSPID VALVE INCOMPETENCE [None]
  - OSTEOARTHRITIS [None]
  - INTERVERTEBRAL DISC PROTRUSION [None]
  - HYPOAESTHESIA [None]
  - PULMONARY HYPERTENSION [None]
  - RIGHT VENTRICULAR SYSTOLIC PRESSURE INCREASED [None]
  - HELICOBACTER INFECTION [None]
  - GASTROOESOPHAGEAL REFLUX DISEASE [None]
  - PAIN IN EXTREMITY [None]
  - RADICULITIS LUMBOSACRAL [None]
  - VENTRICULAR EXTRASYSTOLES [None]
  - PAIN [None]
  - BACK PAIN [None]
  - OEDEMA PERIPHERAL [None]
  - DIASTOLIC DYSFUNCTION [None]
  - PYREXIA [None]
  - SPINAL COLUMN STENOSIS [None]
  - INTERVERTEBRAL DISC DEGENERATION [None]
  - OSTEOSCLEROSIS [None]
  - EROSIVE OESOPHAGITIS [None]
  - ABDOMINAL TENDERNESS [None]
  - PARAESTHESIA ORAL [None]
  - NAUSEA [None]
  - HIATUS HERNIA [None]
  - ABDOMINAL PAIN LOWER [None]
  - CHEST PAIN [None]
  - INFLUENZA [None]
  - INTERVERTEBRAL DISC DISORDER [None]
  - SPINAL DISORDER [None]
  - INADEQUATE ANALGESIA [None]
  - HYPERAEMIA [None]
  - MUSCULOSKELETAL PAIN [None]
